FAERS Safety Report 4456253-7 (Version None)
Quarter: 2004Q3

REPORT INFORMATION
  Report Type: 
  Country: None (occurrence: None)
  Receive Date: 20040920
  Receipt Date: 20040907
  Transmission Date: 20050211
  Serious: Yes (Other)
  Sender: FDA-Public Use
  Company Number: 2004057755

PATIENT
  Age: 60 Year
  Sex: Male
  Weight: 108.8633 kg

DRUGS (3)
  1. LIPITOR [Suspect]
     Indication: BLOOD CHOLESTEROL INCREASED
     Dates: start: 20030101
  2. NICOTINIC ACID [Concomitant]
  3. METFORMIN HCL [Concomitant]

REACTIONS (4)
  - ADENOCARCINOMA PANCREAS [None]
  - BILE DUCT OBSTRUCTION [None]
  - JAUNDICE [None]
  - LIVER FUNCTION TEST ABNORMAL [None]
